FAERS Safety Report 6306192-1 (Version None)
Quarter: 2009Q3

REPORT INFORMATION
  Report Type: 
  Country: None (occurrence: None)
  Receive Date: 20090812
  Receipt Date: 20090803
  Transmission Date: 20100115
  Serious: Yes (Disabling)
  Sender: FDA-Public Use
  Company Number: VE-ROCHE-647605

PATIENT
  Sex: Female
  Weight: 58 kg

DRUGS (2)
  1. PEGASYS [Suspect]
     Indication: HEPATITIS C
     Route: 042
     Dates: start: 20090718
  2. COPEGUS [Suspect]
     Indication: HEPATITIS C
     Route: 048
     Dates: start: 20090718, end: 20090802

REACTIONS (4)
  - DEPRESSION [None]
  - HEADACHE [None]
  - HYPERTHERMIA [None]
  - TREMOR [None]
